FAERS Safety Report 20714329 (Version 2)
Quarter: 2022Q2

REPORT INFORMATION
  Report Type: Spontaneous
  Country: UY (occurrence: UY)
  Receive Date: 20220415
  Receipt Date: 20220526
  Transmission Date: 20220721
  Serious: No
  Sender: FDA-Public Use
  Company Number: UY-PFIZER INC-202200500569

PATIENT
  Age: 9 Year
  Sex: Female

DRUGS (1)
  1. GENOTROPIN [Suspect]
     Active Substance: SOMATROPIN
     Indication: Short stature
     Dosage: 0.6 TO 1.0 MG SEVEN TIMES PER WEEK
     Dates: start: 20210610

REACTIONS (2)
  - Device breakage [Unknown]
  - Device mechanical issue [Unknown]
